FAERS Safety Report 5956763-7 (Version None)
Quarter: 2008Q4

REPORT INFORMATION
  Report Type: 
  Country: None (occurrence: None)
  Receive Date: 20081114
  Receipt Date: 20081114
  Transmission Date: 20090506
  Serious: Yes (Hospitalization)
  Sender: FDA-Public Use
  Company Number: None

PATIENT
  Age: 53 Year
  Sex: Female
  Weight: 99.79 kg

DRUGS (2)
  1. LEVAQUIN [Suspect]
     Indication: DIVERTICULITIS
     Dosage: 500MG  EVERY 24 HOURS IV DRIP, ONE DOSE
     Route: 041
     Dates: start: 20081111, end: 20081111
  2. FLAGYL [Suspect]
     Indication: DIVERTICULITIS
     Dosage: 500MG EVERY 8 HOURS IV DRIP, ONE DOSE
     Route: 041
     Dates: start: 20081111, end: 20081111

REACTIONS (6)
  - DYSPNOEA [None]
  - FLUSHING [None]
  - INFUSION RELATED REACTION [None]
  - LARYNGEAL DISORDER [None]
  - SALIVARY HYPERSECRETION [None]
  - STRIDOR [None]
